FAERS Safety Report 5912476-9 (Version None)
Quarter: 2008Q4

REPORT INFORMATION
  Report Type: 
  Country: None (occurrence: None)
  Receive Date: 20081007
  Receipt Date: 20081007
  Transmission Date: 20090506
  Serious: Yes (Life-Threatening, Hospitalization, Disabling)
  Sender: FDA-Public Use
  Company Number: None

PATIENT
  Age: 87 Year
  Sex: Female

DRUGS (1)
  1. LEVAQUIN [Suspect]
     Indication: INFECTION
     Dosage: 500MG ONCE IV
     Route: 042
     Dates: start: 20080915, end: 20080915

REACTIONS (2)
  - BLOOD MAGNESIUM DECREASED [None]
  - TORSADE DE POINTES [None]
